FAERS Safety Report 4882406-X (Version None)
Quarter: 2006Q1

REPORT INFORMATION
  Report Type: 
  Country: None (occurrence: None)
  Receive Date: 20060117
  Receipt Date: 20060109
  Transmission Date: 20060701
  Serious: Yes (Other)
  Sender: FDA-Public Use
  Company Number: US-AVENTIS-200610340GDDC

PATIENT
  Age: 45 Year
  Sex: Male

DRUGS (7)
  1. GLIBENCLAMIDE [Suspect]
     Indication: DIABETES MELLITUS
     Route: 048
  2. ATORVASTATIN [Concomitant]
  3. PIOGLITAZONE HCL [Concomitant]
  4. GABAPENTIN [Concomitant]
  5. LISINOPRIL [Concomitant]
  6. ASPIRIN [Concomitant]
  7. OMEPRAZOLE [Concomitant]

REACTIONS (7)
  - EXFOLIATIVE RASH [None]
  - HYPERPLASIA [None]
  - LICHENOID KERATOSIS [None]
  - RASH [None]
  - RASH PAPULOSQUAMOUS [None]
  - RASH PRURITIC [None]
  - SKIN DISCOLOURATION [None]
